FAERS Safety Report 15264163 (Version 1)
Quarter: 2018Q3

REPORT INFORMATION
  Report Type: Report from Study
  Country: PL (occurrence: PL)
  Receive Date: 20180810
  Receipt Date: 20180810
  Transmission Date: 20181010
  Serious: Yes (Other)
  Sender: FDA-Public Use
  Company Number: PL-ROCHE-2166078

PATIENT
  Age: 22 Year
  Sex: Male
  Weight: 81 kg

DRUGS (4)
  1. EBETREXAT [Concomitant]
     Active Substance: METHOTREXATE SODIUM
     Indication: STILL^S DISEASE
     Route: 058
     Dates: start: 20150101
  2. FOLIC ACID. [Concomitant]
     Active Substance: FOLIC ACID
     Indication: STILL^S DISEASE
     Dosage: 2 X 15 MG, EVERY WEEK
     Route: 048
     Dates: start: 20150101
  3. METYPRED [Concomitant]
     Active Substance: METHYLPREDNISOLONE
     Indication: STILL^S DISEASE
     Dosage: EVERY DAY
     Route: 048
     Dates: start: 20150101
  4. ROACTEMRA [Suspect]
     Active Substance: TOCILIZUMAB
     Indication: STILL^S DISEASE
     Route: 058
     Dates: start: 20170406, end: 20180530

REACTIONS (3)
  - Serum sickness [Recovered/Resolved]
  - Off label use [Unknown]
  - Intentional product use issue [Unknown]

NARRATIVE: CASE EVENT DATE: 20171201
